FAERS Safety Report 6228604-4 (Version None)
Quarter: 2009Q2

REPORT INFORMATION
  Report Type: 
  Country: None (occurrence: None)
  Receive Date: 20090612
  Receipt Date: 20090604
  Transmission Date: 20091009
  Serious: Yes (Other)
  Sender: FDA-Public Use
  Company Number: TW-ABBOTT-09P-153-0579429-00

PATIENT
  Age: 49 Year
  Sex: Female

DRUGS (2)
  1. LEUPLIN FOR INJECTION 3.75 MG [Suspect]
     Indication: UTERINE LEIOMYOMA
     Route: 058
     Dates: start: 20071116, end: 20080411
  2. LEUPLIN FOR INJECTION 3.75 MG [Suspect]
     Indication: MENORRHAGIA

REACTIONS (1)
  - INTERSTITIAL LUNG DISEASE [None]
